FAERS Safety Report 24756711 (Version 1)
Quarter: 2024Q4

REPORT INFORMATION
  Report Type: Spontaneous
  Country: US (occurrence: US)
  Receive Date: 20241220
  Receipt Date: 20241220
  Transmission Date: 20250115
  Serious: Yes (Hospitalization, Other)
  Sender: SPECGX
  Company Number: US-SPECGX-T202402378

PATIENT
  Age: 31 Month
  Sex: Female

DRUGS (2)
  1. METHADONE [Suspect]
     Active Substance: METHADONE HYDROCHLORIDE
     Indication: Product used for unknown indication
     Dosage: UNK
     Route: 065
  2. DRONABINOL [Suspect]
     Active Substance: DRONABINOL
     Indication: Product used for unknown indication
     Dosage: UNK
     Route: 065

REACTIONS (11)
  - Neurotoxicity [Unknown]
  - Brain oedema [Unknown]
  - Gaze palsy [Unknown]
  - Tremor [Unknown]
  - Hypotonia [Unknown]
  - Unresponsive to stimuli [Unknown]
  - Miosis [Recovered/Resolved]
  - Bradypnoea [Unknown]
  - Accidental exposure to product by child [Unknown]
  - Echolalia [Unknown]
  - Hypertonia [Unknown]
